FAERS Safety Report 10052606 (Version 1)
Quarter: 2014Q1

REPORT INFORMATION
  Report Type: Spontaneous
  Country: GB (occurrence: None)
  Receive Date: 20140331
  Receipt Date: 20140331
  Transmission Date: 20141002
  Serious: Yes (Hospitalization)
  Sender: FDA-Public Use
  Company Number: 2256935

PATIENT
  Sex: 0

DRUGS (4)
  1. CALCIUM FOLINATE [Suspect]
     Indication: COLORECTAL CANCER
  2. FLUOROURACIL [Suspect]
     Indication: COLORECTAL CANCER
  3. CAMPTO [Concomitant]
  4. CICLOSPORIN [Suspect]
     Indication: OFF LABEL USE

REACTIONS (3)
  - Drug interaction [None]
  - Colorectal cancer [None]
  - Condition aggravated [None]
